FAERS Safety Report 7571528-0 (Version None)
Quarter: 2011Q2

REPORT INFORMATION
  Report Type: 
  Country: None (occurrence: None)
  Receive Date: 20110624
  Receipt Date: 20110616
  Transmission Date: 20111010
  Serious: Yes (Hospitalization)
  Sender: FDA-Public Use
  Company Number: FR-JNJFOC-20110107219

PATIENT
  Age: 71 Year
  Sex: Female

DRUGS (3)
  1. MEDROL [Suspect]
     Indication: PRODUCT USED FOR UNKNOWN INDICATION
     Route: 065
     Dates: start: 20110110
  2. LEVOFLOXACIN [Suspect]
     Indication: PRODUCT USED FOR UNKNOWN INDICATION
     Route: 048
     Dates: start: 20110110, end: 20110110
  3. PROPRANOLOL [Concomitant]
     Indication: MIGRAINE
     Route: 065

REACTIONS (6)
  - SPEECH DISORDER [None]
  - COUGH [None]
  - ANAPHYLACTIC SHOCK [None]
  - BRONCHOSPASM [None]
  - CHEST PAIN [None]
  - DYSPNOEA [None]
